FAERS Safety Report 7281817-5 (Version None)
Quarter: 2011Q1

REPORT INFORMATION
  Report Type: 
  Country: None (occurrence: None)
  Receive Date: 20110126
  Receipt Date: 20110111
  Transmission Date: 20110831
  Serious: Yes (Hospitalization)
  Sender: FDA-Public Use
  Company Number: US-2011-10001

PATIENT
  Sex: Male

DRUGS (1)
  1. PLETAL (CILOSTAZOL) TABLET [Suspect]

REACTIONS (1)
  - PULMONARY EMBOLISM [None]
